FAERS Safety Report 7269670-7 (Version None)
Quarter: 2011Q1

REPORT INFORMATION
  Report Type: 
  Country: None (occurrence: None)
  Receive Date: 20110202
  Receipt Date: 20110125
  Transmission Date: 20110831
  Serious: Yes (Hospitalization)
  Sender: FDA-Public Use
  Company Number: JP-ELI_LILLY_AND_COMPANY-JP201101003691

PATIENT
  Age: 79 Year
  Sex: Female

DRUGS (11)
  1. DORNER [Concomitant]
     Dosage: 120 UG, UNK
     Route: 048
  2. ALDOMET [Concomitant]
     Dosage: 250 MG, UNK
     Route: 048
  3. MUCOSOLVAN [Concomitant]
     Dosage: 45 MG, UNK
     Route: 048
  4. TADALAFIL [Suspect]
     Indication: PULMONARY ARTERIAL HYPERTENSION
     Dosage: 20 MG, DAILY (1/D)
     Route: 048
     Dates: start: 20101221, end: 20110105
  5. OMEPRAL [Concomitant]
     Dosage: 20 MG, DAILY (1/D)
     Route: 048
  6. VOLIBRIS [Concomitant]
     Dosage: UNK, UNK
     Route: 048
     Dates: end: 20110105
  7. CALBLOCK [Concomitant]
     Dosage: 8 MG, DAILY (1/D)
     Route: 048
  8. RASILEZ [Concomitant]
     Dosage: 150 MG, DAILY (1/D)
     Route: 048
  9. RIZE [Concomitant]
     Dosage: 10 MG, UNK
     Route: 048
  10. FRANDOL [Concomitant]
     Dosage: 40 MG, DAILY (1/D)
     Route: 062
  11. ALDACTONE [Concomitant]
     Dosage: 1 D/F, DAILY (1/D)
     Route: 048

REACTIONS (1)
  - PULMONARY OEDEMA [None]
